FAERS Safety Report 13657561 (Version 1)
Quarter: 2017Q2

REPORT INFORMATION
  Report Type: Spontaneous
  Country: US (occurrence: US)
  Receive Date: 20170615
  Receipt Date: 20170615
  Transmission Date: 20170830
  Serious: No
  Sender: FDA-Public Use
  Company Number: US-B.I. PHARMACEUTICALS,INC./RIDGEFIELD-2017-BI-032542

PATIENT
  Age: 78 Year
  Sex: Male

DRUGS (2)
  1. GILOTRIF [Suspect]
     Active Substance: AFATINIB
     Indication: NON-SMALL CELL LUNG CANCER METASTATIC
     Dosage: 1 TABLET DAILY;  FORM STRENGTH: 30 MG; FORMULATION: TABLET? ADMINISTRATION CORRECT? YES ?ACTION(S) T
     Route: 048
     Dates: start: 20170425, end: 20170509
  2. GILOTRIF [Suspect]
     Active Substance: AFATINIB
     Dosage: 1 TABLET DAILY;  FORM STRENGTH: 20 MG; FORMULATION: TABLET? ADMINISTRATION CORRECT? YES ?ACTION(S) T
     Route: 048
     Dates: start: 20170502, end: 20170606

REACTIONS (4)
  - Rash [Recovered/Resolved]
  - Diarrhoea [Not Recovered/Not Resolved]
  - Decreased appetite [Not Recovered/Not Resolved]
  - Dizziness [Not Recovered/Not Resolved]

NARRATIVE: CASE EVENT DATE: 201705
